FAERS Safety Report 14610139 (Version 1)
Quarter: 2018Q1

REPORT INFORMATION
  Report Type: Spontaneous
  Country: GB (occurrence: GB)
  Receive Date: 20180307
  Receipt Date: 20180307
  Transmission Date: 20180509
  Serious: Yes (Other)
  Sender: FDA-Public Use
  Company Number: GB-LINDE-GB-LHC-2018054

PATIENT
  Age: 83 Year
  Sex: Male

DRUGS (1)
  1. OXYGEN (GENERIC) [Suspect]
     Active Substance: OXYGEN
     Indication: ANAESTHESIA PROCEDURE
     Route: 055

REACTIONS (2)
  - Thermal burn [Recovered/Resolved]
  - Accident [Recovered/Resolved]
